FAERS Safety Report 21787772 (Version 1)
Quarter: 2022Q4

REPORT INFORMATION
  Report Type: Spontaneous
  Country: GB (occurrence: GB)
  Receive Date: 20221228
  Receipt Date: 20221228
  Transmission Date: 20230112
  Serious: Yes (Other)
  Sender: FDA-Public Use
  Company Number: None

PATIENT
  Age: 94 Year
  Sex: Female
  Weight: 48 kg

DRUGS (21)
  1. FUROSEMIDE [Suspect]
     Active Substance: FUROSEMIDE
     Indication: Product used for unknown indication
     Dates: start: 20221111
  2. ADCAL [Concomitant]
     Dates: start: 20220421
  3. PERU BALSAM, BISMUTH SUBGALLATE,BISMUTH OXIDE, ZINC OXIDE [Concomitant]
     Dates: start: 20221117
  4. ASPIRIN [Concomitant]
     Active Substance: ASPIRIN
     Dates: start: 20220824, end: 20221027
  5. BECLOMETHASONE DIPROPIONATE [Concomitant]
     Active Substance: BECLOMETHASONE DIPROPIONATE
     Dates: start: 20221201
  6. BENZYDAMINE HYDROCHLORIDE [Concomitant]
     Active Substance: BENZYDAMINE HYDROCHLORIDE
     Dates: start: 20221209
  7. BETAHISTINE [Concomitant]
     Active Substance: BETAHISTINE
     Dates: start: 20220421, end: 20221027
  8. BISOPROLOL [Concomitant]
     Active Substance: BISOPROLOL
     Dates: start: 20221024, end: 20221121
  9. AMOXICILLIN\CLAVULANATE POTASSIUM [Concomitant]
     Active Substance: AMOXICILLIN\CLAVULANATE POTASSIUM
     Dates: start: 20220913, end: 20220927
  10. CODEINE PHOSPHATE [Concomitant]
     Active Substance: CODEINE PHOSPHATE
     Dates: start: 20220913
  11. DIGOXIN [Concomitant]
     Active Substance: DIGOXIN
     Dates: start: 20221104
  12. DILTIAZEM [Concomitant]
     Active Substance: DILTIAZEM
     Dates: start: 20221117
  13. ISOPROPYL MYRISTATE\MINERAL OIL [Concomitant]
     Active Substance: ISOPROPYL MYRISTATE\MINERAL OIL
     Dates: start: 20221115
  14. EDOXABAN [Concomitant]
     Active Substance: EDOXABAN
     Dates: start: 20221024
  15. LACTULOSE [Concomitant]
     Active Substance: LACTULOSE
     Dates: start: 20220421
  16. LEVOTHYROXINE [Concomitant]
     Active Substance: LEVOTHYROXINE
     Dates: start: 20220421
  17. LOPERAMIDE [Concomitant]
     Active Substance: LOPERAMIDE
     Dates: start: 20220913, end: 20221011
  18. POLYETHYLENE GLYCOLS [Concomitant]
     Active Substance: POLYETHYLENE GLYCOLS
     Indication: Constipation
     Dates: start: 20221117
  19. OMEPRAZOLE [Concomitant]
     Active Substance: OMEPRAZOLE
     Dates: start: 20220824
  20. ACETAMINOPHEN [Concomitant]
     Active Substance: ACETAMINOPHEN
     Dates: start: 20220421
  21. RAMIPRIL [Concomitant]
     Active Substance: RAMIPRIL
     Dates: start: 20221201

REACTIONS (2)
  - Angioedema [Recovering/Resolving]
  - Mouth swelling [Unknown]
